FAERS Safety Report 8240969-0 (Version None)
Quarter: 2012Q1

REPORT INFORMATION
  Report Type: 
  Country: None (occurrence: None)
  Receive Date: 20120328
  Receipt Date: 20120316
  Transmission Date: 20120608
  Serious: Yes (Other)
  Sender: FDA-Public Use
  Company Number: US-CELGENEUS-163-21880-12032064

PATIENT
  Sex: Male

DRUGS (11)
  1. PAMIDRONATE DISODIUM [Concomitant]
     Route: 065
     Dates: start: 20110701
  2. METHOCARBAMOL [Concomitant]
     Route: 065
  3. REVLIMID [Suspect]
     Indication: MULTIPLE MYELOMA
     Dosage: 25 MILLIGRAM
     Route: 048
     Dates: start: 20120201, end: 20120201
  4. VELCADE [Concomitant]
     Route: 065
     Dates: start: 20110801
  5. RANITIDINE [Concomitant]
     Route: 065
  6. ACYCLOVIR [Concomitant]
     Route: 065
  7. DEXAMETHASONE [Concomitant]
     Route: 065
     Dates: start: 20110701
  8. REVLIMID [Suspect]
     Dosage: 15 MILLIGRAM
     Route: 048
     Dates: start: 20120301
  9. HYDROCODONE BITARTRATE AND ACETAMINOPHEN [Concomitant]
     Route: 065
  10. REVLIMID [Suspect]
     Dosage: 25 MILLIGRAM
     Route: 048
     Dates: start: 20120301, end: 20120313
  11. ASPIRIN [Concomitant]
     Route: 065

REACTIONS (4)
  - LEUKOCYTOCLASTIC VASCULITIS [None]
  - PLATELET COUNT DECREASED [None]
  - HAEMOGLOBIN DECREASED [None]
  - WHITE BLOOD CELL COUNT DECREASED [None]
